FAERS Safety Report 20199703 (Version 1)
Quarter: 2021Q4

REPORT INFORMATION
  Report Type: Spontaneous
  Country: US (occurrence: US)
  Receive Date: 20211217
  Receipt Date: 20211217
  Transmission Date: 20220303
  Serious: No
  Sender: FDA-Public Use
  Company Number: US-NOVEN PHARMACEUTICALS, INC.-2020US008628

PATIENT
  Sex: Female

DRUGS (2)
  1. ESTRADIOL [Suspect]
     Active Substance: ESTRADIOL
     Indication: Menopausal symptoms
     Dosage: 0.075 MG, 2/WEEK
     Route: 062
     Dates: start: 2018
  2. ESTRADIOL [Suspect]
     Active Substance: ESTRADIOL
     Indication: Hysterectomy

REACTIONS (3)
  - Application site vesicles [Unknown]
  - Application site rash [Recovered/Resolved]
  - Application site pruritus [Unknown]
